FAERS Safety Report 10145995 (Version 2)
Quarter: 2014Q2

REPORT INFORMATION
  Report Type: Report from Study
  Country: AU (occurrence: AU)
  Receive Date: 20140501
  Receipt Date: 20140623
  Transmission Date: 20141212
  Serious: Yes (Other)
  Sender: FDA-Public Use
  Company Number: PHHY2014AU052445

PATIENT
  Age: 75 Year
  Sex: Female
  Weight: 63 kg

DRUGS (5)
  1. ACLASTA [Suspect]
     Indication: OSTEOPOROSIS
     Dosage: 5 MG, UNK
     Route: 042
     Dates: start: 20100622
  2. ACLASTA [Suspect]
     Dosage: 5 MG, UNK
     Route: 042
     Dates: start: 20111031
  3. ACLASTA [Suspect]
     Dosage: 5 MG, UNK
     Route: 042
     Dates: start: 20130225
  4. SOMAC [Concomitant]
     Dosage: 40 NOCTE
     Route: 048
     Dates: start: 20040917
  5. AURORIX [Concomitant]
     Dosage: 300 NOCTE
     Route: 048
     Dates: start: 20060331

REACTIONS (3)
  - Arrhythmia [Recovered/Resolved]
  - Supraventricular tachycardia [Unknown]
  - Palpitations [Recovering/Resolving]
